FAERS Safety Report 22000575 (Version 8)
Quarter: 2023Q2

REPORT INFORMATION
  Report Type: Report from Study
  Country: NO (occurrence: NO)
  Receive Date: 20230216
  Receipt Date: 20230615
  Transmission Date: 20230721
  Serious: Yes (Hospitalization, Other)
  Sender: FDA-Public Use
  Company Number: NO-PFIZER INC-PV202300006981

PATIENT
  Age: 4 Year
  Sex: Female
  Weight: 16.5 kg

DRUGS (10)
  1. CRIZOTINIB [Suspect]
     Active Substance: CRIZOTINIB
     Indication: Inflammatory myofibroblastic tumour
     Dosage: 187.5 MG, 2X/DAY
     Route: 048
     Dates: start: 20221227, end: 20230215
  2. CRIZOTINIB [Suspect]
     Active Substance: CRIZOTINIB
     Dosage: 187 MG, 1X/DAY
     Route: 048
     Dates: start: 20230224
  3. SPIRONOLACTONE [Concomitant]
     Active Substance: SPIRONOLACTONE
     Indication: Blood albumin decreased
     Dosage: 20 MG, 2X/DAY
     Dates: start: 2021
  4. SPIRONOLACTONE [Concomitant]
     Active Substance: SPIRONOLACTONE
     Indication: Diuretic therapy
  5. NEXIUM [Concomitant]
     Active Substance: ESOMEPRAZOLE MAGNESIUM
     Indication: Gastritis
     Dosage: 10 MG, 1X/DAY
     Dates: start: 2021
  6. FERROGLYCINE SULFATE [Concomitant]
     Active Substance: FERROGLYCINE SULFATE
     Dosage: 30 MG, 2X/DAY
     Dates: start: 2021
  7. ASPIRIN [Concomitant]
     Active Substance: ASPIRIN
     Dosage: 50 MG, 1X/DAY
     Dates: start: 2021
  8. KA-VIT [Concomitant]
     Dosage: 2 MG, 1X/DAY
     Dates: start: 2021
  9. PANCREX [Concomitant]
     Dosage: 0.2 G, 4X/DAY
     Dates: start: 2021
  10. DECAS [Concomitant]
     Indication: Pancreatic enzyme replacement therapy
     Dosage: 1 ML, 2X/DAY

REACTIONS (13)
  - Hypoalbuminaemia [Not Recovered/Not Resolved]
  - Ascites [Not Recovered/Not Resolved]
  - Neutropenia [Recovered/Resolved]
  - Haematochezia [Recovered/Resolved]
  - Escherichia sepsis [Recovered/Resolved]
  - Urosepsis [Recovered/Resolved]
  - Renal failure [Recovered/Resolved]
  - Dry skin [Recovering/Resolving]
  - Conjunctivitis [Recovering/Resolving]
  - Diarrhoea [Recovering/Resolving]
  - Blood creatinine increased [Recovered/Resolved]
  - Tonsillitis [Recovered/Resolved]
  - Adenovirus infection [Recovered/Resolved]

NARRATIVE: CASE EVENT DATE: 20230101
